FAERS Safety Report 15046430 (Version 2)
Quarter: 2018Q4

REPORT INFORMATION
  Report Type: Report from Study
  Country: US (occurrence: US)
  Receive Date: 20180621
  Receipt Date: 20181026
  Transmission Date: 20190204
  Serious: Yes (Death, Hospitalization)
  Sender: FDA-Public Use
  Company Number: US-ACTELION-A-US2017-163258

PATIENT
  Age: 74 Year
  Sex: Male
  Weight: 58.5 kg

DRUGS (9)
  1. OXYGEN. [Concomitant]
     Active Substance: OXYGEN
     Dosage: UNK
     Dates: start: 201703
  2. DOXYCYCLINE. [Concomitant]
     Active Substance: DOXYCYCLINE
  3. PREDNISONE. [Concomitant]
     Active Substance: PREDNISONE
  4. DILTIAZEM. [Concomitant]
     Active Substance: DILTIAZEM
  5. FUROSEMIDE. [Concomitant]
     Active Substance: FUROSEMIDE
     Dosage: 20 MG, UNK
     Dates: start: 201703
  6. SILDENAFIL. [Concomitant]
     Active Substance: SILDENAFIL
     Dosage: 40 MG, UNK
     Dates: start: 201703
  7. UPTRAVI [Suspect]
     Active Substance: SELEXIPAG
     Dosage: 1200 MCG, BID
     Route: 048
  8. UPTRAVI [Suspect]
     Active Substance: SELEXIPAG
     Indication: PULMONARY ARTERIAL HYPERTENSION
     Dosage: 400 MCG, BID
     Route: 048
     Dates: start: 20171111
  9. UPTRAVI [Suspect]
     Active Substance: SELEXIPAG
     Dosage: 1600 MCG, BID
     Route: 048
     Dates: end: 20180610

REACTIONS (7)
  - Disease progression [Fatal]
  - Right ventricular failure [Recovered/Resolved]
  - Diarrhoea [Unknown]
  - Dyspnoea [Fatal]
  - Gout [Recovered/Resolved]
  - Therapy non-responder [Unknown]
  - Myalgia [Unknown]

NARRATIVE: CASE EVENT DATE: 20180416
